FAERS Safety Report 6963148-3 (Version None)
Quarter: 2010Q3

REPORT INFORMATION
  Report Type: 
  Country: None (occurrence: None)
  Receive Date: 20100902
  Receipt Date: 20100823
  Transmission Date: 20110219
  Serious: Yes (Other)
  Sender: FDA-Public Use
  Company Number: GXKR2010KR09488

PATIENT
  Age: 50 Year
  Sex: Male

DRUGS (6)
  1. CISPLATIN [Suspect]
     Indication: SMALL CELL CARCINOMA
     Dosage: 60 MG/M2, ON DAYS 1-3, REPEATED EVERY 3 WEEKS
     Route: 042
  2. DEXAMETHASONE (NGX) [Suspect]
     Indication: SMALL CELL CARCINOMA
     Dosage: 12 MG, ON THE FIRST DAY OF CHEMOTHERAPY
     Route: 042
  3. DEXAMETHASONE (NGX) [Suspect]
     Dosage: 8 MG DAILY
  4. ETOPOSIDE [Concomitant]
     Indication: SMALL CELL CARCINOMA
     Dosage: 100 MG/M2, ON DAYS 1-3, REPEATED EVERY 3 WEEKS
     Route: 042
  5. LAMIVUDINE [Concomitant]
     Indication: HEPATITIS B
     Route: 065
  6. RADIOTHERAPY [Concomitant]
     Route: 065

REACTIONS (1)
  - AORTIC THROMBOSIS [None]
